FAERS Safety Report 8772531 (Version 5)
Quarter: 2013Q1

REPORT INFORMATION
  Report Type: Spontaneous
  Country: US (occurrence: US)
  Receive Date: 20120905
  Receipt Date: 20130314
  Transmission Date: 20140127
  Serious: Yes (Hospitalization, Disabling, Other)
  Sender: FDA-Public Use
  Company Number: US-009507513-1208USA012038

PATIENT
  Sex: Female

DRUGS (9)
  1. FOSAMAX [Suspect]
     Indication: OSTEOPENIA
     Dosage: 10 MG, QD
     Route: 048
     Dates: start: 200008, end: 2004
  2. FOSAMAX [Suspect]
     Dosage: 70 MG, QW
     Route: 048
     Dates: start: 2004, end: 200801
  3. FOSAMAX [Suspect]
     Indication: OSTEOPOROSIS
     Dosage: 70 MG QW
     Route: 048
     Dates: start: 200802, end: 201012
  4. FOSAMAX [Suspect]
     Indication: OSTEOPENIA
  5. VITAMINS (UNSPECIFIED) [Concomitant]
     Dosage: UNK
     Dates: start: 1997
  6. VITAMIN E [Concomitant]
     Dosage: UNK
     Dates: start: 1997
  7. ASCORBIC ACID [Concomitant]
     Dosage: UNK
     Dates: start: 1997
  8. VITAMIN D (UNSPECIFIED) [Concomitant]
     Dosage: UNK
     Dates: start: 1997
  9. OMEGA-3 MARINE TRIGLYCERIDES [Concomitant]
     Dosage: UNK
     Dates: start: 1997

REACTIONS (25)
  - Open reduction of fracture [Unknown]
  - Atypical femur fracture [Unknown]
  - Osteoporosis [Unknown]
  - Low turnover osteopathy [Unknown]
  - Fall [Unknown]
  - Stress fracture [Unknown]
  - Spinal laminectomy [Unknown]
  - Intervertebral disc protrusion [Unknown]
  - Spinal column stenosis [Unknown]
  - Haemoglobin decreased [Unknown]
  - Arthritis [Unknown]
  - Hypothyroidism [Unknown]
  - Diabetes mellitus [Unknown]
  - Hyperlipidaemia [Not Recovered/Not Resolved]
  - Gastrooesophageal reflux disease [Unknown]
  - Intervertebral disc degeneration [Unknown]
  - Hepatic function abnormal [Not Recovered/Not Resolved]
  - Insomnia [Unknown]
  - Fibrocystic breast disease [Unknown]
  - Scoliosis [Unknown]
  - Limb asymmetry [Unknown]
  - Postmenopausal haemorrhage [Unknown]
  - Spinal osteoarthritis [Not Recovered/Not Resolved]
  - Kyphoscoliosis [Unknown]
  - Hypertension [Unknown]
